FAERS Safety Report 24195530 (Version 3)
Quarter: 2024Q3

REPORT INFORMATION
  Report Type: Spontaneous
  Country: GB (occurrence: GB)
  Receive Date: 20240809
  Receipt Date: 20240814
  Transmission Date: 20241017
  Serious: Yes (Other)
  Sender: JOHNSON AND JOHNSON
  Company Number: GB-JNJFOC-20240809000

PATIENT
  Age: 89 Year
  Sex: Female

DRUGS (1)
  1. SIMPONI [Suspect]
     Active Substance: GOLIMUMAB
     Indication: Rheumatoid arthritis
     Dosage: 50.00 MG / 0.50 ML
     Route: 058

REACTIONS (3)
  - Dementia [Unknown]
  - Extra dose administered [Unknown]
  - Device leakage [Unknown]
